FAERS Safety Report 8623794-8 (Version None)
Quarter: 2012Q3

REPORT INFORMATION
  Report Type: 
  Country: None (occurrence: None)
  Receive Date: 20120827
  Receipt Date: 20120817
  Transmission Date: 20120928
  Serious: Yes (Other)
  Sender: FDA-Public Use
  Company Number: US-UCBSA-063291

PATIENT
  Age: 19 Year
  Sex: Female

DRUGS (1)
  1. KEPPRA [Suspect]
     Route: 048
     Dates: start: 20071217

REACTIONS (4)
  - CONVULSION [None]
  - FEELING ABNORMAL [None]
  - TREATMENT NONCOMPLIANCE [None]
  - DRUG INEFFECTIVE [None]
